FAERS Safety Report 8588143-2 (Version None)
Quarter: 2012Q3

REPORT INFORMATION
  Report Type: 
  Country: None (occurrence: None)
  Receive Date: 20120731
  Receipt Date: 20120717
  Transmission Date: 20120928
  Serious: Yes (Hospitalization, Other)
  Sender: FDA-Public Use
  Company Number: TPA2012A04334

PATIENT
  Age: 35 Year
  Sex: Female
  Weight: 86.637 kg

DRUGS (1)
  1. EDARBYCLOR [Suspect]
     Indication: MALIGNANT HYPERTENSION
     Dosage: 1 IN 1 D, PER ORAL
     Route: 048
     Dates: start: 20120622, end: 20120626

REACTIONS (4)
  - FATIGUE [None]
  - MUSCULAR WEAKNESS [None]
  - HYPOKALAEMIA [None]
  - BLOOD CHLORIDE DECREASED [None]
